FAERS Safety Report 9423149 (Version 2)
Quarter: 2013Q3

REPORT INFORMATION
  Report Type: Spontaneous
  Country: US (occurrence: US)
  Receive Date: 20130726
  Receipt Date: 20130814
  Transmission Date: 20140515
  Serious: Yes (Hospitalization)
  Sender: FDA-Public Use
  Company Number: US-BRISTOL-MYERS SQUIBB COMPANY-19106905

PATIENT
  Age: 48 Year
  Sex: Female
  Weight: 53.06 kg

DRUGS (1)
  1. ABATACEPT SUBQ INJECTION 125MG/ML [Suspect]
     Indication: RHEUMATOID ARTHRITIS
     Dosage: 1DF: 125MG/ML?LAST DOSE: 07JUL2013
     Route: 058
     Dates: start: 201204, end: 201206

REACTIONS (3)
  - Guillain-Barre syndrome [Recovering/Resolving]
  - Paralysis [Unknown]
  - Incorrect product storage [Unknown]
